FAERS Safety Report 24638933 (Version 2)
Quarter: 2024Q4

REPORT INFORMATION
  Report Type: Spontaneous
  Country: US (occurrence: US)
  Receive Date: 20241119
  Receipt Date: 20241128
  Transmission Date: 20250114
  Serious: No
  Sender: SANOFI AVENTIS
  Company Number: US-SA-2024SA334207

PATIENT
  Age: 41 Year
  Sex: Male
  Weight: 88.18 kg

DRUGS (21)
  1. DUPIXENT [Suspect]
     Active Substance: DUPILUMAB
     Indication: Immunodeficiency
     Dosage: 300 MG, QOW
     Route: 058
     Dates: start: 2024
  2. DUPIXENT [Suspect]
     Active Substance: DUPILUMAB
     Indication: Nasal polyps
  3. DUPIXENT [Suspect]
     Active Substance: DUPILUMAB
     Indication: Rheumatoid arthritis
  4. DUPIXENT [Suspect]
     Active Substance: DUPILUMAB
     Indication: Nasal polyps
  5. AMLODIPINE BESYLATE [Concomitant]
     Active Substance: AMLODIPINE BESYLATE
  6. BUDESONIDE [Concomitant]
     Active Substance: BUDESONIDE
  7. CYCLOSPORINE [Concomitant]
     Active Substance: CYCLOSPORINE
  8. ADALIMUMAB [Concomitant]
     Active Substance: ADALIMUMAB
  9. SULFASALAZINE [Concomitant]
     Active Substance: SULFASALAZINE
  10. HIZENTRA [Concomitant]
     Active Substance: HUMAN IMMUNOGLOBULIN G
  11. COMIRNATY [Concomitant]
  12. HUMIRA [Concomitant]
     Active Substance: ADALIMUMAB
  13. SHINGRIX [Concomitant]
     Active Substance: RECOMBINANT VARICELLA ZOSTER VIRUS (VZV) GLYCOPROTEIN E
  14. AZITHROMYCIN [Concomitant]
     Active Substance: AZITHROMYCIN
  15. METHYLPREDNISOLONE [Concomitant]
     Active Substance: METHYLPREDNISOLONE
  16. LOSARTAN POTASSIUM [Concomitant]
     Active Substance: LOSARTAN POTASSIUM
  17. IMIQUIMOD [Concomitant]
     Active Substance: IMIQUIMOD
  18. FLUARIX NOS [Concomitant]
     Active Substance: INFLUENZA VIRUS VACCINE
  19. HYDROXYCHLOROQUINE SULFATE [Concomitant]
     Active Substance: HYDROXYCHLOROQUINE SULFATE
  20. AMOXICILLIN [Concomitant]
     Active Substance: AMOXICILLIN
  21. AMOXICILLIN\CLAVULANATE POTASSIUM [Concomitant]
     Active Substance: AMOXICILLIN\CLAVULANATE POTASSIUM

REACTIONS (4)
  - Infection [Unknown]
  - Sinusitis [Unknown]
  - Skin papilloma [Unknown]
  - Product use in unapproved indication [Unknown]

NARRATIVE: CASE EVENT DATE: 20240101
